FAERS Safety Report 18239482 (Version 3)
Quarter: 2020Q3

REPORT INFORMATION
  Report Type: Spontaneous
  Country: FR (occurrence: FR)
  Receive Date: 20200908
  Receipt Date: 20200918
  Transmission Date: 20201103
  Serious: Yes (Hospitalization, Other)
  Sender: FDA-Public Use
  Company Number: FR-BEH-2020122065

PATIENT
  Age: 34 Year
  Sex: Female

DRUGS (5)
  1. RHOPHYLAC [Suspect]
     Active Substance: HUMAN RHO(D) IMMUNE GLOBULIN
     Indication: ABORTION INDUCED
     Dosage: 300 MICROGRAM (2ML), SINGLE (1 DOSE)
     Route: 065
     Dates: start: 201810, end: 201810
  2. RHOPHYLAC [Suspect]
     Active Substance: HUMAN RHO(D) IMMUNE GLOBULIN
     Indication: ABORTION INDUCED
     Dosage: 300 MICROGRAM (2ML), SINGLE (1 DOSE)
     Route: 065
     Dates: start: 201810, end: 201810
  3. VENTOLINE [SALBUTAMOL] [Concomitant]
     Active Substance: ALBUTEROL SULFATE
     Indication: ASTHMA
  4. AERIUS [EBASTINE] [Concomitant]
     Active Substance: EBASTINE
     Indication: ASTHMA
  5. LEVOTHYROX [Concomitant]
     Active Substance: LEVOTHYROXINE
     Indication: HYPOTHYROIDISM
     Dosage: UNK
     Route: 065
     Dates: end: 2019

REACTIONS (7)
  - Dyspnoea [Recovered/Resolved]
  - Pain in extremity [Unknown]
  - Vena cava thrombosis [Recovered/Resolved]
  - Phlebitis [Recovered/Resolved]
  - Pulmonary embolism [Recovered/Resolved]
  - Pelvic venous thrombosis [Recovered/Resolved]
  - Peripheral swelling [Unknown]

NARRATIVE: CASE EVENT DATE: 2020
